FAERS Safety Report 6723362-9 (Version None)
Quarter: 2010Q2

REPORT INFORMATION
  Report Type: 
  Country: None (occurrence: None)
  Receive Date: 20100513
  Receipt Date: 20100506
  Transmission Date: 20101027
  Serious: Yes (Other)
  Sender: FDA-Public Use
  Company Number: US-RB-008632-10

PATIENT
  Age: 59 Year
  Sex: Male

DRUGS (3)
  1. SUBUTEX [Suspect]
     Route: 060
     Dates: start: 20070101, end: 20070101
  2. SUBUTEX [Suspect]
     Dosage: UNKNOWN DOSING DETAILS
     Route: 065
     Dates: start: 20070101
  3. SUBOXONE [Suspect]
     Route: 060
     Dates: start: 20070101, end: 20070101

REACTIONS (2)
  - HALLUCINATION [None]
  - SOMNAMBULISM [None]
